FAERS Safety Report 10085098 (Version 2)
Quarter: 2014Q4

REPORT INFORMATION
  Report Type: Spontaneous
  Country: US (occurrence: US)
  Receive Date: 20140417
  Receipt Date: 20141029
  Transmission Date: 20150528
  Serious: Yes (Hospitalization, Disabling)
  Sender: FDA-Public Use
  Company Number: US-009507513-1404USA006907

PATIENT
  Sex: Male

DRUGS (12)
  1. ALBUTEROL SULFATE. [Concomitant]
     Active Substance: ALBUTEROL SULFATE
     Indication: ASTHMA
     Dosage: UNK
     Route: 055
  2. DIFFERIN [Concomitant]
     Active Substance: ADAPALENE
     Indication: ACNE CYSTIC
     Dosage: UNK, HS
     Route: 061
  3. DALIRESP [Concomitant]
     Active Substance: ROFLUMILAST
     Indication: ASTHMA
     Dosage: UNK
  4. MONTELUKAST SODIUM. [Concomitant]
     Active Substance: MONTELUKAST SODIUM
     Indication: ASTHMA
     Dosage: UNK
     Route: 048
  5. CLEOCIN T [Concomitant]
     Active Substance: CLINDAMYCIN PHOSPHATE
     Indication: ACNE CYSTIC
     Dosage: UNK, BID
     Route: 061
  6. PROPECIA [Suspect]
     Active Substance: FINASTERIDE
     Indication: ANDROGENETIC ALOPECIA
     Dosage: 1 MG, QD
     Route: 048
     Dates: start: 19980610, end: 2009
  7. THEOPHYLLINE [Concomitant]
     Active Substance: THEOPHYLLINE ANHYDROUS
     Indication: ASTHMA
     Dosage: UNK
  8. PREDNISONE. [Concomitant]
     Active Substance: PREDNISONE
     Indication: ASTHMA
     Dosage: UNK
  9. DESLORATADINE. [Concomitant]
     Active Substance: DESLORATADINE
     Indication: ASTHMA
     Dosage: UNK
     Route: 048
  10. XOLAIR [Concomitant]
     Active Substance: OMALIZUMAB
     Indication: ASTHMA
     Dosage: UNK
  11. MINOCYCLINE [Concomitant]
     Active Substance: MINOCYCLINE\MINOCYCLINE HYDROCHLORIDE
     Indication: ACNE CYSTIC
     Dosage: 100 MG, BID
  12. IPRATROPIUM BROMIDE. [Concomitant]
     Active Substance: IPRATROPIUM BROMIDE
     Indication: ASTHMA
     Dosage: UNK

REACTIONS (23)
  - Asthma [Unknown]
  - Loss of libido [Unknown]
  - Osteoporosis [Unknown]
  - Xerosis [Unknown]
  - Furuncle [Unknown]
  - Lower limb fracture [Unknown]
  - Erectile dysfunction [Not Recovered/Not Resolved]
  - Hidradenitis [Unknown]
  - Chemical burn of skin [Recovering/Resolving]
  - Post inflammatory pigmentation change [Recovering/Resolving]
  - Cognitive disorder [Not Recovered/Not Resolved]
  - Semen volume decreased [Unknown]
  - Depression [Not Recovered/Not Resolved]
  - Epididymitis [Unknown]
  - Blood testosterone decreased [Not Recovered/Not Resolved]
  - Rheumatoid arthritis [Unknown]
  - Testicular pain [Not Recovered/Not Resolved]
  - Sexual dysfunction [Not Recovered/Not Resolved]
  - Epididymitis [Recovering/Resolving]
  - Dermatitis contact [Unknown]
  - Paraplegia [Unknown]
  - Folliculitis [Recovering/Resolving]
  - Dermal cyst [Unknown]

NARRATIVE: CASE EVENT DATE: 1999
